FAERS Safety Report 9740418 (Version 1)
Quarter: 2013Q4

REPORT INFORMATION
  Report Type: Report from Study
  Country: JP (occurrence: JP)
  Receive Date: 20131209
  Receipt Date: 20131209
  Transmission Date: 20140711
  Serious: Yes (Death, Other)
  Sender: FDA-Public Use
  Company Number: JP-TAKEDA-2013TUS002992

PATIENT
  Sex: 0

DRUGS (6)
  1. FEBURIC [Suspect]
     Indication: HYPERURICAEMIA
     Dosage: 20 MG, QD
     Route: 048
     Dates: start: 20120821, end: 20130706
  2. EVIPROSTAT N [Concomitant]
     Indication: PROSTATISM
     Dosage: UNK
     Route: 048
     Dates: start: 20020213, end: 20130115
  3. SIGMART [Concomitant]
     Indication: ANGINA PECTORIS
     Dosage: 15 MG, QD
     Route: 048
     Dates: start: 20080428, end: 20120115
  4. DETRUSITOL [Concomitant]
     Indication: NEUROGENIC BLADDER
     Dosage: 2 MG, QD
     Route: 048
     Dates: start: 20100709, end: 20130115
  5. TAKEPRON [Concomitant]
     Indication: GASTROOESOPHAGEAL REFLUX DISEASE
     Dosage: 15 MG, QD
     Route: 048
     Dates: start: 20100216, end: 20130629
  6. JUZENTAIHOTO [Concomitant]
     Indication: NEOPLASM MALIGNANT
     Dosage: 7.5 MG, QD
     Route: 048
     Dates: start: 20120424, end: 20130629

REACTIONS (1)
  - Sepsis [Fatal]
